FAERS Safety Report 12934710 (Version 2)
Quarter: 2019Q2

REPORT INFORMATION
  Report Type: Spontaneous
  Country: US (occurrence: US)
  Receive Date: 20161111
  Receipt Date: 20190416
  Transmission Date: 20190711
  Serious: No
  Sender: FDA-Public Use
  Company Number: US-ELI_LILLY_AND_COMPANY-US201611003013

PATIENT
  Sex: Male

DRUGS (2)
  1. HUMULIN R U-500 [Suspect]
     Active Substance: INSULIN HUMAN
     Dosage: 80 U, UNKNOWN
     Route: 065
  2. HUMULIN R U-500 [Suspect]
     Active Substance: INSULIN HUMAN
     Indication: TYPE 2 DIABETES MELLITUS
     Dosage: 80 U, UNKNOWN
     Route: 065

REACTIONS (15)
  - Disturbance in attention [Unknown]
  - Fatigue [Unknown]
  - Product dose omission [Unknown]
  - Dizziness [Unknown]
  - Somnolence [Unknown]
  - Hyperhidrosis [Unknown]
  - Visual impairment [Unknown]
  - Blood glucose increased [Unknown]
  - Feeling abnormal [Unknown]
  - Blood glucose decreased [Unknown]
  - Vision blurred [Unknown]
  - Blood glucose increased [Unknown]
  - Muscular weakness [Unknown]
  - Dyspnoea [Unknown]
  - Product dose omission [Unknown]

NARRATIVE: CASE EVENT DATE: 20161107
